FAERS Safety Report 25044688 (Version 2)
Quarter: 2025Q1

REPORT INFORMATION
  Report Type: Spontaneous
  Country: DE (occurrence: DE)
  Receive Date: 20250306
  Receipt Date: 20250313
  Transmission Date: 20250408
  Serious: Yes (Other)
  Sender: GLENMARK
  Company Number: DE-GLENMARK PHARMACEUTICALS-2025GMK097725

PATIENT
  Age: 50 Year
  Sex: Female

DRUGS (3)
  1. DESLORATADINE [Suspect]
     Active Substance: DESLORATADINE
     Indication: Hypersensitivity
     Dosage: QD ( ? TABLET PER DAY FOR ONE WEEK)
     Route: 065
  2. DESLORATADINE [Suspect]
     Active Substance: DESLORATADINE
     Dosage: QD (AFTER THE 1ST WEEK SHE STARTED TAKING 1/2 TABLET PER DAY FOR ANOTHER WEEK)
     Route: 065
     Dates: end: 20250203
  3. FEXOFENADINE [Concomitant]
     Active Substance: FEXOFENADINE HYDROCHLORIDE
     Indication: Product used for unknown indication
     Route: 065

REACTIONS (9)
  - Mental impairment [Recovered/Resolved]
  - Ill-defined disorder [Recovered/Resolved]
  - Impaired driving ability [Recovered/Resolved]
  - Nausea [Recovered/Resolved]
  - Headache [Recovered/Resolved]
  - Somnolence [Recovered/Resolved]
  - Intentional product misuse [Unknown]
  - Product after taste [Unknown]
  - Drug ineffective for unapproved indication [Unknown]
